FAERS Safety Report 10506857 (Version 6)
Quarter: 2015Q1

REPORT INFORMATION
  Report Type: Spontaneous
  Country: US (occurrence: US)
  Receive Date: 20141009
  Receipt Date: 20150213
  Transmission Date: 20150720
  Serious: Yes (Other)
  Sender: FDA-Public Use
  Company Number: US-AMGEN INC.-USASP2014075799

PATIENT
  Age: 64 Year
  Sex: Female
  Weight: 47.62 kg

DRUGS (22)
  1. ENBREL [Suspect]
     Active Substance: ETANERCEPT
     Indication: RHEUMATOID ARTHRITIS
     Dosage: 50 MG, QWK
     Route: 065
     Dates: start: 20121211, end: 20130604
  2. MEDROL [Concomitant]
     Active Substance: METHYLPREDNISOLONE
     Dosage: 4 MG, AS NECESSARY
  3. PLAQUENIL [Concomitant]
     Active Substance: HYDROXYCHLOROQUINE SULFATE
     Dosage: UNK
  4. KINERET [Concomitant]
     Active Substance: ANAKINRA
     Dosage: UNK
  5. VALIUM [Concomitant]
     Active Substance: DIAZEPAM
     Dosage: 5 MG, TABLET 1/2-1 12 HRS PRN
     Route: 048
  6. BACTROBAN                          /00753901/ [Concomitant]
     Dosage: 2% OINTMENT APPLY EACH NOSTRIL BID
     Route: 045
  7. FLEXERIL [Concomitant]
     Active Substance: CYCLOBENZAPRINE HYDROCHLORIDE
     Indication: MUSCLE SPASMS
     Dosage: 10 MG, 1 TABLET Q8HRS PRN
     Route: 048
  8. NAPROXEN. [Concomitant]
     Active Substance: NAPROXEN
     Dosage: UNK
  9. ARAVA [Concomitant]
     Active Substance: LEFLUNOMIDE
     Dosage: UNK
  10. SULFASALAZINE. [Concomitant]
     Active Substance: SULFASALAZINE
     Dosage: UNK
  11. NAPROSYN [Concomitant]
     Active Substance: NAPROXEN
     Dosage: 250 MG, BID
     Route: 048
  12. KLONOPIN [Concomitant]
     Active Substance: CLONAZEPAM
     Dosage: 0.5 MG, TAB 1 PO Q12 HRS PRN
     Route: 048
  13. PREDNISONE. [Concomitant]
     Active Substance: PREDNISONE
     Dosage: 1 MG TABLET 3 TABS TWICE DAILY
     Route: 048
  14. RITUXAN [Concomitant]
     Active Substance: RITUXIMAB
     Dosage: UNK
  15. METHOTREXATE [Suspect]
     Active Substance: METHOTREXATE
     Indication: RHEUMATOID ARTHRITIS
     Dosage: 5 MG, QWK
     Route: 048
     Dates: start: 20140114, end: 20140829
  16. FOLIC ACID. [Concomitant]
     Active Substance: FOLIC ACID
     Dosage: 1 MG, QD
     Route: 048
  17. AZATHIOPRINE. [Concomitant]
     Active Substance: AZATHIOPRINE
     Dosage: UNK
  18. SYNTHROID [Concomitant]
     Active Substance: LEVOTHYROXINE SODIUM
     Indication: HYPOTHYROIDISM
     Dosage: 100 MCG TABLET 1 TABLET ON EMPTY STOMACH 1 TABLET DAILY
  19. ROMYCIN                            /00928801/ [Concomitant]
     Dosage: 5 MG/G, OINTMENT 1 APPLICATION TWICE A DAY
  20. ORENCIA [Concomitant]
     Active Substance: ABATACEPT
     Dosage: UNK
  21. ACTEMRA [Concomitant]
     Active Substance: TOCILIZUMAB
     Dosage: UNK
  22. CYTOXAN [Concomitant]
     Active Substance: CYCLOPHOSPHAMIDE
     Dosage: UNK

REACTIONS (24)
  - Rheumatoid arthritis [Unknown]
  - Pollakiuria [Unknown]
  - Insomnia [Unknown]
  - Abdominal pain [Unknown]
  - Breast cancer [Unknown]
  - Cataract [Unknown]
  - Cystitis [Unknown]
  - Hypoaesthesia [Unknown]
  - Paraesthesia [Unknown]
  - Hypokinesia [Unknown]
  - Herpes zoster [Recovered/Resolved]
  - Sinusitis [Unknown]
  - Dry eye [Unknown]
  - Dysphagia [Unknown]
  - Bronchitis [Unknown]
  - Osteoporosis [Unknown]
  - Hypothyroidism [Unknown]
  - Infection [Recovered/Resolved]
  - Chest pain [Unknown]
  - Adverse drug reaction [Unknown]
  - Cough [Recovered/Resolved]
  - Oropharyngeal pain [Recovered/Resolved]
  - Systemic lupus erythematosus [Unknown]
  - Vision blurred [Unknown]

NARRATIVE: CASE EVENT DATE: 20140826
